FAERS Safety Report 9402087 (Version 1)
Quarter: 2013Q3

REPORT INFORMATION
  Report Type: Spontaneous
  Country: US (occurrence: US)
  Receive Date: 20130716
  Receipt Date: 20130716
  Transmission Date: 20140515
  Serious: Yes (Hospitalization, Other)
  Sender: FDA-Public Use
  Company Number: US-SANOFI-AVENTIS-2013SA071026

PATIENT
  Age: 58 Year
  Sex: Female
  Weight: 68 kg

DRUGS (18)
  1. PLAVIX [Suspect]
     Route: 048
  2. BIOTENE [Concomitant]
  3. CARVEDILOL [Concomitant]
  4. DIPHENHYDRAMINE HYDROCHLORIDE [Concomitant]
  5. FOLIC ACID [Concomitant]
  6. HYDROCHLOROTHIAZIDE [Concomitant]
  7. LIPITOR [Concomitant]
  8. LISINOPRIL [Concomitant]
  9. OCUVITE [Concomitant]
  10. MECLIZINE [Concomitant]
     Indication: DIZZINESS
  11. MECLIZINE [Concomitant]
     Indication: VERTIGO
  12. MUCINEX [Concomitant]
     Indication: SINUS DISORDER
  13. MVI [Concomitant]
  14. NIACIN [Concomitant]
  15. FESOTERODINE [Concomitant]
  16. B COMPLEX [Concomitant]
  17. VITAMIN D [Concomitant]
  18. ZINC [Concomitant]

REACTIONS (5)
  - Cerebrovascular accident [Unknown]
  - Vascular graft [Unknown]
  - Haemorrhage [Unknown]
  - Constipation [Unknown]
  - Chest pain [Unknown]
